FAERS Safety Report 13453336 (Version 1)
Quarter: 2017Q2

REPORT INFORMATION
  Report Type: Spontaneous
  Country: US (occurrence: US)
  Receive Date: 20170418
  Receipt Date: 20170418
  Transmission Date: 20170830
  Serious: No
  Sender: FDA-Public Use
  Company Number: US-ALLERGAN-1654790US

PATIENT
  Age: 65 Year
  Sex: Female

DRUGS (1)
  1. LATISSE [Suspect]
     Active Substance: BIMATOPROST
     Indication: GROWTH OF EYELASHES
     Dosage: 2 GTT, UNK
     Route: 061
     Dates: start: 2012, end: 201512

REACTIONS (7)
  - Swelling face [Recovered/Resolved]
  - Blepharal pigmentation [Not Recovered/Not Resolved]
  - Ocular hyperaemia [Unknown]
  - Inappropriate schedule of drug administration [Unknown]
  - Eye pruritus [Recovered/Resolved]
  - Skin hyperpigmentation [Not Recovered/Not Resolved]
  - Eye inflammation [Unknown]

NARRATIVE: CASE EVENT DATE: 20151222
